FAERS Safety Report 4903335-9 (Version None)
Quarter: 2006Q1

REPORT INFORMATION
  Report Type: 
  Country: None (occurrence: None)
  Receive Date: 20060206
  Receipt Date: 20060206
  Transmission Date: 20060701
  Serious: No
  Sender: FDA-Public Use
  Company Number: None

PATIENT
  Age: 58 Year
  Sex: Male

DRUGS (2)
  1. IBUPROFEN [Suspect]
     Indication: PAIN
     Dosage: 600MG Q8
     Dates: start: 20051122, end: 20051124
  2. NAFCILLIN [Suspect]
     Indication: STAPHYLOCOCCAL INFECTION
     Dosage: 2GM Q4
     Dates: start: 20051122, end: 20051124

REACTIONS (2)
  - HAEMODIALYSIS [None]
  - RENAL FAILURE ACUTE [None]
